FAERS Safety Report 5740453-X (Version None)
Quarter: 2008Q2

REPORT INFORMATION
  Report Type: 
  Country: None (occurrence: None)
  Receive Date: 20080516
  Receipt Date: 20080505
  Transmission Date: 20081010
  Serious: Yes (Other)
  Sender: FDA-Public Use
  Company Number: HQWYE894713JUL06

PATIENT
  Sex: Female
  Weight: 88.53 kg

DRUGS (2)
  1. PREMARIN [Suspect]
     Dosage: UNKNOWN, 48 MOS. (4 YEARS)
     Dates: start: 19910101, end: 19950901
  2. PROVERA [Suspect]
     Dosage: UNKNOWN

REACTIONS (1)
  - BREAST CANCER METASTATIC [None]
